FAERS Safety Report 9611038 (Version 3)
Quarter: 2013Q4

REPORT INFORMATION
  Report Type: Spontaneous
  Country: FR (occurrence: FR)
  Receive Date: 20131009
  Receipt Date: 20131223
  Transmission Date: 20140711
  Serious: Yes (Death, Hospitalization, Other)
  Sender: FDA-Public Use
  Company Number: FR-BRISTOL-MYERS SQUIBB COMPANY-19043041

PATIENT
  Age: 71 Year
  Sex: Male

DRUGS (24)
  1. YERVOY [Suspect]
     Indication: METASTATIC MALIGNANT MELANOMA
     Dosage: 1DF:5MG/ML.RECENT DOSE:14MAY2013.2ND LINE:3MG/KG-1/21/D IV:2AP13-14MY13
     Route: 042
     Dates: start: 20130402, end: 20130514
  2. CORTANCYL [Suspect]
     Route: 048
     Dates: start: 201305
  3. OCTREOTIDE [Suspect]
     Route: 040
     Dates: start: 20130828
  4. CACIT D3 [Concomitant]
     Dates: start: 20130521
  5. DENOSUMAB [Concomitant]
     Dosage: XGEVA
     Route: 058
  6. INNOHEP [Concomitant]
     Route: 058
     Dates: start: 20130523
  7. COTAREG [Concomitant]
     Dosage: 1DF:160MG/12.5MG
     Route: 048
     Dates: start: 20130518
  8. DIFFU-K [Concomitant]
     Route: 048
  9. ALLOPURINOL [Concomitant]
     Route: 048
     Dates: start: 20130521
  10. XANAX [Concomitant]
     Route: 048
  11. PARACETAMOL [Concomitant]
     Route: 048
  12. SPASFON-LYOC [Concomitant]
     Route: 048
  13. FORLAX [Concomitant]
  14. METEOSPASMYL [Concomitant]
  15. DEBRIDAT [Concomitant]
  16. INEXIUM [Concomitant]
  17. TAMSULOSIN [Concomitant]
     Dosage: 1DF:0.4
  18. DUROGESIC [Concomitant]
  19. PREVISCAN [Concomitant]
  20. TEMODAL [Concomitant]
     Dates: start: 20130902, end: 20130907
  21. LAROXYL [Concomitant]
  22. LYRICA [Concomitant]
     Dosage: 1DF:25
  23. OXYNORM [Concomitant]
     Dates: start: 20130827
  24. METHYLPREDNISOLONE [Concomitant]
     Dates: start: 20130829

REACTIONS (7)
  - Death [Fatal]
  - Malignant neoplasm progression [Unknown]
  - Colitis [Recovering/Resolving]
  - Blood thyroid stimulating hormone decreased [Not Recovered/Not Resolved]
  - Tri-iodothyronine free decreased [Not Recovered/Not Resolved]
  - Adrenocorticotropic hormone deficiency [Not Recovered/Not Resolved]
  - Blood glucose increased [Not Recovered/Not Resolved]
